FAERS Safety Report 24735873 (Version 2)
Quarter: 2024Q4

REPORT INFORMATION
  Report Type: Report from Study
  Country: US (occurrence: US)
  Receive Date: 20241216
  Receipt Date: 20241231
  Transmission Date: 20250114
  Serious: Yes (Hospitalization, Other)
  Sender: ABBVIE
  Company Number: US-ABBVIE-6043019

PATIENT
  Age: 77 Year
  Sex: Male
  Weight: 85.275 kg

DRUGS (1)
  1. SKYRIZI [Suspect]
     Active Substance: RISANKIZUMAB-RZAA
     Indication: Psoriatic arthropathy
     Route: 058
     Dates: start: 2022

REACTIONS (5)
  - Coronary artery disease [Recovered/Resolved]
  - Cerebrovascular accident [Not Recovered/Not Resolved]
  - Atrial fibrillation [Recovered/Resolved]
  - Cerebrovascular accident [Recovered/Resolved]
  - Arrhythmia [Recovered/Resolved]

NARRATIVE: CASE EVENT DATE: 20230301
